FAERS Safety Report 23257399 (Version 1)
Quarter: 2023Q4

REPORT INFORMATION
  Report Type: Spontaneous
  Country: US (occurrence: None)
  Receive Date: 20231201
  Receipt Date: 20231201
  Transmission Date: 20240110
  Serious: Yes (Hospitalization)
  Sender: FDA-Public Use
  Company Number: None

PATIENT
  Age: 53 Year
  Sex: Female

DRUGS (12)
  1. ADEMPAS [Suspect]
     Active Substance: RIOCIGUAT
     Indication: Pulmonary arterial hypertension
     Dosage: FREQUENCY : TWICE A DAY;?
     Route: 048
     Dates: start: 20221021
  2. ADEMPAS 1.5 MG TABLETS 90/BO: 1.5MG [Concomitant]
     Dosage: FREQUENCY : TWICE A DAY;?
     Route: 048
     Dates: start: 20221021
  3. OPSUMIT [Concomitant]
     Active Substance: MACITENTAN
  4. FUROSDEMIDE [Concomitant]
  5. GABAPENTIN [Concomitant]
     Active Substance: GABAPENTIN
  6. METOCLOPRAMIDE [Concomitant]
  7. OMEPRAZOLE [Concomitant]
  8. PAROXETINE [Concomitant]
  9. TRAZODONE [Concomitant]
  10. FLONASE [Concomitant]
  11. IMITREX [Concomitant]
  12. VOLTAREN TOP GEL [Concomitant]

REACTIONS (3)
  - Dyspnoea [None]
  - Pericardial effusion [None]
  - Right ventricular failure [None]

NARRATIVE: CASE EVENT DATE: 20231113
